FAERS Safety Report 23247658 (Version 2)
Quarter: 2024Q1

REPORT INFORMATION
  Report Type: Spontaneous
  Country: US (occurrence: US)
  Receive Date: 20231130
  Receipt Date: 20240308
  Transmission Date: 20240409
  Serious: Yes (Death)
  Sender: FDA-Public Use
  Company Number: US-PFIZER INC-PV202300194616

PATIENT
  Age: 84 Year
  Sex: Male

DRUGS (3)
  1. VYNDAMAX [Suspect]
     Active Substance: TAFAMIDIS
     Indication: Amyloidosis
     Dosage: 61 MG
  2. VYNDAMAX [Suspect]
     Active Substance: TAFAMIDIS
     Indication: Cardiac amyloidosis
  3. TAFAMIDIS MEGLUMINE [Suspect]
     Active Substance: TAFAMIDIS MEGLUMINE
     Indication: Cardiac amyloidosis
     Dosage: 20 MG, 1X/DAY
     Dates: start: 201911

REACTIONS (4)
  - Pulmonary embolism [Fatal]
  - Cardiogenic shock [Fatal]
  - Acute kidney injury [Fatal]
  - Off label use [Unknown]

NARRATIVE: CASE EVENT DATE: 20231015
